FAERS Safety Report 5361915-3 (Version None)
Quarter: 2007Q2

REPORT INFORMATION
  Report Type: 
  Country: None (occurrence: None)
  Receive Date: 20070612
  Receipt Date: 20070604
  Transmission Date: 20071010
  Serious: Yes (Death)
  Sender: FDA-Public Use
  Company Number: 2007AP000600

PATIENT

DRUGS (2)
  1. VALPROIC ACID [Suspect]
     Indication: CONVULSION
  2. ASPIRIN [Concomitant]

REACTIONS (3)
  - CONDITION AGGRAVATED [None]
  - DRUG INTERACTION [None]
  - POST PROCEDURAL HAEMORRHAGE [None]
